FAERS Safety Report 4709858-X (Version None)
Quarter: 2005Q3

REPORT INFORMATION
  Report Type: 
  Country: None (occurrence: None)
  Receive Date: 20050708
  Receipt Date: 20050624
  Transmission Date: 20060218
  Serious: Yes (Other)
  Sender: FDA-Public Use
  Company Number: DE-JNJFOC-20050606946

PATIENT
  Age: 30 Year
  Sex: Male

DRUGS (6)
  1. RISPERDAL [Suspect]
     Indication: SCHIZOAFFECTIVE DISORDER
     Route: 049
  2. LEPONEX [Suspect]
     Route: 049
  3. LEPONEX [Suspect]
     Route: 049
  4. LEPONEX [Suspect]
     Indication: SCHIZOAFFECTIVE DISORDER
     Route: 049
  5. ORFIRIL [Concomitant]
     Route: 049
  6. RESONIUM [Concomitant]
     Route: 049

REACTIONS (2)
  - ASPARTATE AMINOTRANSFERASE INCREASED [None]
  - RHABDOMYOLYSIS [None]
